FAERS Safety Report 13635141 (Version 1)
Quarter: 2017Q2

REPORT INFORMATION
  Report Type: Spontaneous
  Country: US (occurrence: US)
  Receive Date: 20170608
  Receipt Date: 20170608
  Transmission Date: 20170830
  Serious: Yes (Hospitalization)
  Sender: FDA-Public Use
  Company Number: None

PATIENT
  Age: 65 Year
  Sex: Female
  Weight: 60.75 kg

DRUGS (12)
  1. B [Concomitant]
  2. VITAMIN D [Concomitant]
     Active Substance: CHOLECALCIFEROL
  3. PROLIA [Suspect]
     Active Substance: DENOSUMAB
     Indication: OSTEOPOROSIS
     Dosage: ?          OTHER FREQUENCY:3 INJECTIONS;?
     Route: 058
     Dates: start: 20151117, end: 20161222
  4. C [Concomitant]
  5. CALCIUM [Concomitant]
     Active Substance: CALCIUM
  6. E [Concomitant]
  7. LISINOPRIL. [Concomitant]
     Active Substance: LISINOPRIL
  8. COENZYME Q10 [Concomitant]
     Active Substance: UBIDECARENONE
  9. ATORVASTATIN [Concomitant]
     Active Substance: ATORVASTATIN
  10. FISH LIVER ZOIL [Concomitant]
  11. BIOTIN [Concomitant]
     Active Substance: BIOTIN
  12. ADVIL [Concomitant]
     Active Substance: IBUPROFEN

REACTIONS (1)
  - Appendicitis perforated [None]

NARRATIVE: CASE EVENT DATE: 20170420
